FAERS Safety Report 20530244 (Version 1)
Quarter: 2022Q1

REPORT INFORMATION
  Report Type: Spontaneous
  Country: US (occurrence: US)
  Receive Date: 20220301
  Receipt Date: 20220301
  Transmission Date: 20220424
  Serious: Yes (Life-Threatening, Other)
  Sender: FDA-Public Use
  Company Number: US-AMGEN-USASP2022033629

PATIENT

DRUGS (4)
  1. FILGRASTIM [Suspect]
     Active Substance: FILGRASTIM
     Indication: Prophylaxis
     Dosage: UNK
     Route: 065
  2. DOCETAXEL [Concomitant]
     Active Substance: DOCETAXEL
     Dosage: 60 MILLIGRAM/SQ. METER EVERY 21 DAYS
     Route: 042
  3. RIBOCICLIB [Concomitant]
     Active Substance: RIBOCICLIB
     Dosage: 400 MILLIGRAM PER DAY
     Route: 048
  4. PREDNISONE [Concomitant]
     Active Substance: PREDNISONE
     Dosage: 5 MILLIGRAM, BID

REACTIONS (77)
  - Neutropenia [Unknown]
  - Neutrophil count decreased [Unknown]
  - Stomatitis [Unknown]
  - Lymphocyte count decreased [Unknown]
  - Abdominal pain [Unknown]
  - White blood cell count decreased [Unknown]
  - Liver function test increased [Unknown]
  - Hyperglycaemia [Unknown]
  - Haemorrhage intracranial [Unknown]
  - Myopathy [Unknown]
  - Trismus [Unknown]
  - Pneumonitis [Unknown]
  - Pneumonia [Unknown]
  - Embolism [Unknown]
  - Upper respiratory tract infection [Unknown]
  - Epistaxis [Unknown]
  - Arthralgia [Unknown]
  - Myalgia [Unknown]
  - Vomiting [Unknown]
  - Muscle spasms [Unknown]
  - Rash [Unknown]
  - Oedema peripheral [Unknown]
  - Dizziness [Unknown]
  - Hepatic enzyme increased [Unknown]
  - Febrile neutropenia [Unknown]
  - Hormone-refractory prostate cancer [Unknown]
  - Neuropathy peripheral [Unknown]
  - Adrenal insufficiency [Unknown]
  - Deep vein thrombosis [Unknown]
  - Gene mutation [Unknown]
  - Blood creatinine increased [Unknown]
  - Muscular weakness [Unknown]
  - Ecchymosis [Unknown]
  - Nail disorder [Unknown]
  - Lacrimation increased [Unknown]
  - Gastrooesophageal reflux disease [Unknown]
  - Infusion related reaction [Unknown]
  - Alanine aminotransferase increased [Unknown]
  - Alanine aminotransferase increased [Unknown]
  - Dry mouth [Unknown]
  - Dyspepsia [Unknown]
  - Hyponatraemia [Unknown]
  - Weight decreased [Unknown]
  - Lacrimation increased [Unknown]
  - Aphasia [Unknown]
  - Bone disorder [Unknown]
  - Candida infection [Unknown]
  - Conjunctivitis [Unknown]
  - Contusion [Unknown]
  - Face oedema [Unknown]
  - Flushing [Unknown]
  - Furuncle [Unknown]
  - Glossodynia [Unknown]
  - Lethargy [Unknown]
  - Dyskinesia [Unknown]
  - Orthostatic hypertension [Unknown]
  - Pain of skin [Unknown]
  - Palmar-plantar erythrodysaesthesia syndrome [Unknown]
  - Palpitations [Unknown]
  - Rhinitis [Unknown]
  - Skin fissures [Unknown]
  - Telangiectasia [Unknown]
  - Musculoskeletal chest pain [Unknown]
  - Hypotension [Unknown]
  - Paraesthesia [Unknown]
  - Insomnia [Unknown]
  - Pyrexia [Unknown]
  - Decreased appetite [Unknown]
  - Dyspnoea [Unknown]
  - Oropharyngeal pain [Unknown]
  - Blood alkaline phosphatase increased [Unknown]
  - Chest pain [Unknown]
  - Constipation [Unknown]
  - Pain in extremity [Unknown]
  - Platelet count decreased [Unknown]
  - Hypertension [Unknown]
  - Bone pain [Unknown]
